FAERS Safety Report 9506870 (Version 1)
Quarter: 2013Q3

REPORT INFORMATION
  Report Type: Spontaneous
  Country: FR (occurrence: FR)
  Receive Date: 20130909
  Receipt Date: 20130909
  Transmission Date: 20140515
  Serious: Yes (Hospitalization)
  Sender: FDA-Public Use
  Company Number: FR-ROCHE-1271416

PATIENT
  Age: 60 Year
  Sex: Male

DRUGS (8)
  1. ROCEPHINE [Suspect]
     Indication: MENINGITIS
     Route: 051
     Dates: start: 20120425
  2. RIFAMPICINE [Suspect]
     Indication: MENINGITIS
     Route: 048
     Dates: start: 20120425, end: 20120504
  3. AMOXICILLINE [Suspect]
     Indication: MENINGITIS
     Route: 048
  4. ZYVOXID [Concomitant]
  5. INSULATARD [Concomitant]
  6. COTAREG [Concomitant]
  7. PRAVASTATINE [Concomitant]
  8. KARDEGIC [Concomitant]

REACTIONS (1)
  - Acute generalised exanthematous pustulosis [Recovered/Resolved]
